FAERS Safety Report 23833673 (Version 1)
Quarter: 2024Q2

REPORT INFORMATION
  Report Type: Report from Study
  Country: US (occurrence: US)
  Receive Date: 20240508
  Receipt Date: 20240508
  Transmission Date: 20240715
  Serious: Yes (Other)
  Sender: FDA-Public Use
  Company Number: US-002147023-NVSC2024US029575

PATIENT
  Sex: Female

DRUGS (2)
  1. LEQVIO [Suspect]
     Active Substance: INCLISIRAN SODIUM
     Indication: Product used for unknown indication
     Dosage: UNK
     Route: 058
     Dates: start: 20240123
  2. LEQVIO [Suspect]
     Active Substance: INCLISIRAN SODIUM
     Dosage: UNK (SECOND INJECTION)
     Route: 058
     Dates: start: 20240423

REACTIONS (7)
  - Low density lipoprotein decreased [Unknown]
  - Limb discomfort [Unknown]
  - High density lipoprotein increased [Unknown]
  - Sneezing [Unknown]
  - Anxiety [Unknown]
  - Blood cholesterol decreased [Unknown]
  - Muscle discomfort [Unknown]
